FAERS Safety Report 8436672-4 (Version None)
Quarter: 2012Q2

REPORT INFORMATION
  Report Type: 
  Country: None (occurrence: None)
  Receive Date: 20120608
  Receipt Date: 20120608
  Transmission Date: 20120825
  Serious: No
  Sender: FDA-Public Use
  Company Number: None

PATIENT
  Age: 61 Year
  Sex: Female
  Weight: 46.7205 kg

DRUGS (8)
  1. ALPRAZOLAM [Suspect]
     Indication: PANIC ATTACK
     Dosage: .5MG  1 MORNING, 1 AFTER, 1 DINNER, 2 BEDTIME 5 A DAY
     Dates: start: 20010101
  2. ALPRAZOLAM [Suspect]
     Indication: ANXIETY
     Dosage: .5MG  1 MORNING, 1 AFTER, 1 DINNER, 2 BEDTIME 5 A DAY
     Dates: start: 20010101
  3. ALPRAZOLAM [Suspect]
     Indication: PANIC ATTACK
     Dosage: .5MG  1 MORNING, 1 AFTER, 1 DINNER, 2 BEDTIME 5 A DAY
     Dates: start: 20050101
  4. ALPRAZOLAM [Suspect]
     Indication: ANXIETY
     Dosage: .5MG  1 MORNING, 1 AFTER, 1 DINNER, 2 BEDTIME 5 A DAY
     Dates: start: 20050101
  5. ALPRAZOLAM [Suspect]
     Indication: PANIC ATTACK
     Dosage: .5MG  1 MORNING, 1 AFTER, 1 DINNER, 2 BEDTIME 5 A DAY
     Dates: start: 20090101
  6. ALPRAZOLAM [Suspect]
     Indication: ANXIETY
     Dosage: .5MG  1 MORNING, 1 AFTER, 1 DINNER, 2 BEDTIME 5 A DAY
     Dates: start: 20090101
  7. ALPRAZOLAM [Suspect]
     Indication: PANIC ATTACK
     Dosage: .5MG  1 MORNING, 1 AFTER, 1 DINNER, 2 BEDTIME 5 A DAY
     Dates: start: 20110101
  8. ALPRAZOLAM [Suspect]
     Indication: ANXIETY
     Dosage: .5MG  1 MORNING, 1 AFTER, 1 DINNER, 2 BEDTIME 5 A DAY
     Dates: start: 20110101

REACTIONS (10)
  - PALPITATIONS [None]
  - TREMOR [None]
  - EYE SWELLING [None]
  - SWOLLEN TONGUE [None]
  - BLOOD PRESSURE INCREASED [None]
  - DIZZINESS [None]
  - CONDITION AGGRAVATED [None]
  - PANIC ATTACK [None]
  - DYSPNOEA [None]
  - SWELLING FACE [None]
